FAERS Safety Report 15266602 (Version 4)
Quarter: 2020Q2

REPORT INFORMATION
  Report Type: Spontaneous
  Country: DE (occurrence: DE)
  Receive Date: 20180810
  Receipt Date: 20200512
  Transmission Date: 20200713
  Serious: Yes (Hospitalization, Other)
  Sender: FDA-Public Use
  Company Number: PHHY2018DE067453

PATIENT
  Age: 37 Year
  Sex: Female

DRUGS (8)
  1. MCP ^RATIOPHARM^ [Suspect]
     Active Substance: METOCLOPRAMIDE HYDROCHLORIDE
     Indication: KNEE OPERATION
     Dosage: UNK
     Route: 048
  2. BROMELAIN [Suspect]
     Active Substance: BROMELAINS
     Indication: KNEE OPERATION
     Route: 065
  3. LYRICA [Suspect]
     Active Substance: PREGABALIN
     Indication: KNEE OPERATION
     Route: 065
  4. NOVAMINSULFON 500 - 1 A PHARMA [Suspect]
     Active Substance: METAMIZOLE SODIUM
     Indication: KNEE OPERATION
     Dosage: UNK
     Route: 065
  5. NOVAMINSULFON 500 - 1 A PHARMA [Suspect]
     Active Substance: METAMIZOLE SODIUM
     Route: 065
  6. DICLOFENAC [Suspect]
     Active Substance: DICLOFENAC
     Indication: KNEE OPERATION
     Dosage: 225 MG, QD
     Route: 065
  7. PANTOPRAZOL MYLAN [Suspect]
     Active Substance: PANTOPRAZOLE SODIUM
     Indication: KNEE OPERATION
     Route: 065
  8. XARELTO [Suspect]
     Active Substance: RIVAROXABAN
     Indication: KNEE OPERATION
     Route: 065

REACTIONS (8)
  - Coma [Recovered/Resolved]
  - Sepsis [Recovered/Resolved]
  - Analgesic drug level increased [Unknown]
  - Pulmonary function test abnormal [Not Recovered/Not Resolved]
  - Discomfort [Not Recovered/Not Resolved]
  - Hepatic failure [Recovered/Resolved]
  - Pneumonia [Unknown]
  - Poisoning [Recovered/Resolved]

NARRATIVE: CASE EVENT DATE: 2013
